FAERS Safety Report 22589608 (Version 1)
Quarter: 2023Q2

REPORT INFORMATION
  Report Type: Spontaneous
  Country: FI (occurrence: FI)
  Receive Date: 20230612
  Receipt Date: 20230612
  Transmission Date: 20230722
  Serious: Yes (Hospitalization)
  Sender: FDA-Public Use
  Company Number: None

PATIENT
  Age: 42 Year
  Sex: Male

DRUGS (1)
  1. DISULFIRAM [Suspect]
     Active Substance: DISULFIRAM
     Indication: Alcoholism
     Dosage: 1 GRAM DAILY; 1,G,DAILY
     Route: 065
     Dates: start: 20220101, end: 20230201

REACTIONS (4)
  - Polyneuropathy [Recovered/Resolved]
  - Discharge [Recovered/Resolved]
  - Hyperhidrosis [Recovered/Resolved]
  - Mucosal dryness [Recovered/Resolved]

NARRATIVE: CASE EVENT DATE: 20220608
